FAERS Safety Report 17453341 (Version 1)
Quarter: 2020Q1

REPORT INFORMATION
  Report Type: Spontaneous
  Country: US (occurrence: US)
  Receive Date: 20200224
  Receipt Date: 20200224
  Transmission Date: 20200409
  Serious: No
  Sender: FDA-Public Use
  Company Number: US-PERRIGO-19US009005

PATIENT
  Sex: Female
  Weight: 46.71 kg

DRUGS (1)
  1. LOPERAMIDE HYDROCHLORIDE. [Suspect]
     Active Substance: LOPERAMIDE HYDROCHLORIDE
     Indication: PRODUCT USED FOR UNKNOWN INDICATION
     Dosage: 1 MG, UNKNOWN
     Route: 048
     Dates: start: 201907

REACTIONS (2)
  - Underdose [Unknown]
  - Expired product administered [Unknown]

NARRATIVE: CASE EVENT DATE: 201907
